FAERS Safety Report 6679391-7 (Version None)
Quarter: 2010Q2

REPORT INFORMATION
  Report Type: 
  Country: None (occurrence: None)
  Receive Date: 20100413
  Receipt Date: 20100407
  Transmission Date: 20101027
  Serious: Yes (Death, Other)
  Sender: FDA-Public Use
  Company Number: JP-ROCHE-691818

PATIENT
  Sex: Male
  Weight: 63 kg

DRUGS (7)
  1. AVASTIN [Suspect]
     Indication: COLON CANCER METASTATIC
     Route: 041
     Dates: start: 20090624, end: 20090708
  2. IRINOTECAN HYDROCHLORIDE [Concomitant]
     Route: 041
     Dates: start: 20090624, end: 20090624
  3. IRINOTECAN HYDROCHLORIDE [Concomitant]
     Route: 041
     Dates: start: 20090708, end: 20090708
  4. FLUOROURACIL [Concomitant]
     Dosage: STOP DATE: JUN 2009
     Route: 041
     Dates: start: 20090624
  5. FLUOROURACIL [Concomitant]
     Dosage: STOP DATE: JUL 2009
     Route: 041
     Dates: start: 20090708
  6. LEUCOVORIN CALCIUM [Concomitant]
     Route: 041
     Dates: start: 20090624, end: 20090624
  7. LEUCOVORIN CALCIUM [Concomitant]
     Route: 041
     Dates: start: 20090708, end: 20090708

REACTIONS (3)
  - BACTERAEMIA [None]
  - DISEASE PROGRESSION [None]
  - PULMONARY EMBOLISM [None]
